FAERS Safety Report 4999553-4 (Version None)
Quarter: 2006Q2

REPORT INFORMATION
  Report Type: 
  Country: None (occurrence: None)
  Receive Date: 20060511
  Receipt Date: 20050718
  Transmission Date: 20061013
  Serious: Yes (Hospitalization)
  Sender: FDA-Public Use
  Company Number: US-MERCK-0507USA02858

PATIENT
  Age: 42 Year
  Sex: Female
  Weight: 59 kg

DRUGS (2)
  1. VIOXX [Suspect]
     Indication: ARTHRALGIA
     Route: 048
     Dates: start: 20020121, end: 20040831
  2. LISINOPRIL [Concomitant]
     Route: 065

REACTIONS (3)
  - BACK DISORDER [None]
  - GALLBLADDER DISORDER [None]
  - TRANSIENT ISCHAEMIC ATTACK [None]
